FAERS Safety Report 8535838-2 (Version None)
Quarter: 2012Q3

REPORT INFORMATION
  Report Type: 
  Country: None (occurrence: None)
  Receive Date: 20120725
  Receipt Date: 20120712
  Transmission Date: 20120928
  Serious: No
  Sender: FDA-Public Use
  Company Number: US-ROXANE LABORATORIES, INC.-2012-RO-01544RO

PATIENT
  Sex: Male

DRUGS (2)
  1. OXYCODONE HCL [Concomitant]
     Indication: PAIN
  2. METHADONE HYDROCHLORIDE [Suspect]
     Indication: PAIN
     Dosage: 90 MG
     Route: 048

REACTIONS (2)
  - NAUSEA [None]
  - HEADACHE [None]
